FAERS Safety Report 23816739 (Version 2)
Quarter: 2024Q2

REPORT INFORMATION
  Report Type: Spontaneous
  Country: NL (occurrence: NL)
  Receive Date: 20240504
  Receipt Date: 20240520
  Transmission Date: 20240716
  Serious: Yes (Hospitalization)
  Sender: FDA-Public Use
  Company Number: None

PATIENT
  Age: 62 Year
  Sex: Female
  Weight: 87 kg

DRUGS (10)
  1. OXALIPLATIN [Suspect]
     Active Substance: OXALIPLATIN
     Indication: Colon cancer
     Dosage: 250MG (IV 260.9 ML/H) 1X PER 4WK FOR 4X, INFOPL CONC 5MG/ML / BRAND NAME NOT SPECIFIED
     Route: 065
     Dates: start: 20240122, end: 20240329
  2. FUROSEMIDE [Concomitant]
     Active Substance: FUROSEMIDE
     Indication: Product used for unknown indication
     Dosage: TABLET, 20 MG (MILLIGRAM), BRAND NAME NOT SPECIFIED
     Route: 065
  3. APIXABAN [Concomitant]
     Active Substance: APIXABAN
     Indication: Product used for unknown indication
     Dosage: TABLET, 5 MG (MILLIGRAM), BRAND NAME NOT SPECIFIED
     Route: 065
  4. METOCLOPRAMIDE [Concomitant]
     Active Substance: METOCLOPRAMIDE
     Indication: Product used for unknown indication
     Dosage: TABLET, 10 MG (MILLIGRAM), BRAND NAME NOT SPECIFIED
     Route: 065
  5. GRANISETRON [Concomitant]
     Active Substance: GRANISETRON
     Indication: Product used for unknown indication
     Dosage: INJECTION FLUID, 1 MG/ML (MILLIGRAM PER MILLILITER), INJVLST 1MG/ML / BRAND NAME NOT SPECIFIED
     Route: 065
  6. IMIGRAN TAB [Concomitant]
     Indication: Product used for unknown indication
     Dosage: IF NECESSARY 10MG TWICE A DAY, SUMATRIPTAN DISPERTABLET 100MG / IMIGRAN FTAB DISPERSIGABLE TABLET...
     Route: 065
  7. DEXAMETHASONE [Concomitant]
     Active Substance: DEXAMETHASONE
     Indication: Product used for unknown indication
     Dosage: TABLET, 4 MG (MILLIGRAM), BRAND NAME NOT SPECIFIED
     Route: 065
  8. CAPECITABINE [Concomitant]
     Active Substance: CAPECITABINE
     Indication: Product used for unknown indication
     Dosage: 150 MG (MILLIGRAM), BRAND NAME NOT SPECIFIED
     Route: 065
  9. CAPECITABINE [Concomitant]
     Active Substance: CAPECITABINE
     Indication: Product used for unknown indication
     Dosage: 500MG TWICE A DAY 3 PCS 2 WEEKS, BRAND NAME NOT SPECIFIED
     Route: 065
  10. SPIRONOLACTONE [Concomitant]
     Active Substance: SPIRONOLACTONE
     Indication: Product used for unknown indication
     Dosage: TABLET, 25 MG (MILLIGRAM), BRAND NAME NOT SPECIFIED
     Route: 065

REACTIONS (1)
  - Hepatitis acute [Recovering/Resolving]
